FAERS Safety Report 7537280-X (Version None)
Quarter: 2011Q2

REPORT INFORMATION
  Report Type: 
  Country: None (occurrence: None)
  Receive Date: 20110609
  Receipt Date: 20110606
  Transmission Date: 20111010
  Serious: Yes (Other)
  Sender: FDA-Public Use
  Company Number: US-PFIZER INC-2011033383

PATIENT
  Sex: Female
  Weight: 59 kg

DRUGS (8)
  1. PREMPRO [Suspect]
     Indication: HORMONE REPLACEMENT THERAPY
     Dosage: 0.625/2.5 MG
     Route: 048
     Dates: start: 19980201, end: 20010101
  2. PROVERA [Suspect]
     Indication: HORMONE REPLACEMENT THERAPY
     Dosage: UNK
     Route: 048
     Dates: start: 19950101, end: 19970101
  3. CYCRIN [Suspect]
     Dosage: 2.5 MG
     Dates: start: 19990401, end: 19990501
  4. CLIMARA [Suspect]
     Indication: HORMONE REPLACEMENT THERAPY
     Dosage: 0.05 MG
     Dates: start: 19990401, end: 19990501
  5. SYNTHROID [Concomitant]
     Dosage: UNK
     Dates: start: 19840101
  6. PREMARIN [Suspect]
     Indication: HORMONE REPLACEMENT THERAPY
     Dosage: 0.625 MG
     Route: 048
     Dates: start: 19950101, end: 19980201
  7. MEDROXYPROGESTERONE ACETATE [Suspect]
     Indication: HORMONE REPLACEMENT THERAPY
     Dosage: UNK
     Route: 048
     Dates: start: 19970901, end: 19980201
  8. CYCRIN [Suspect]
     Indication: HORMONE REPLACEMENT THERAPY
     Dosage: 2.5 MG
     Dates: start: 19970301, end: 19970901

REACTIONS (1)
  - BREAST CANCER FEMALE [None]
